FAERS Safety Report 20845075 (Version 1)
Quarter: 2022Q2

REPORT INFORMATION
  Report Type: Spontaneous
  Country: FR (occurrence: None)
  Receive Date: 20220518
  Receipt Date: 20220518
  Transmission Date: 20220720
  Serious: Yes (Other)
  Sender: FDA-Public Use
  Company Number: None

PATIENT
  Age: 62 Year
  Sex: Male
  Weight: 107 kg

DRUGS (4)
  1. OXALIPLATIN [Suspect]
     Active Substance: OXALIPLATIN
     Indication: Cholangiocarcinoma
     Dosage: ACCORDING TO CYCLE
     Route: 041
     Dates: start: 20211014, end: 20220303
  2. CAPECITABINE [Suspect]
     Active Substance: CAPECITABINE
     Indication: Cholangiocarcinoma
     Dosage: XELODA 500 MG, COATED TABLET
     Route: 048
     Dates: start: 20220304, end: 20220310
  3. METHYLPREDNISOLONE HEMISUCCINATE [Suspect]
     Active Substance: METHYLPREDNISOLONE HEMISUCCINATE
     Indication: Chemotherapy
     Dosage: ACCORDING TO CYCLE?METHYLPREDNISOLONE MYLAN 120 MG,POWDER FOR INJECTABLE SOLUTION (IM-IV)
     Route: 041
     Dates: start: 20211014, end: 20220303
  4. FLUOROURACIL [Suspect]
     Active Substance: FLUOROURACIL
     Indication: Cholangiocarcinoma
     Dosage: ACCORDING TO CYCLE
     Route: 041
     Dates: start: 20211014, end: 20220203

REACTIONS (1)
  - Behaviour disorder [Unknown]

NARRATIVE: CASE EVENT DATE: 20220309
